FAERS Safety Report 8839622 (Version 3)
Quarter: 2013Q1

REPORT INFORMATION
  Report Type: Spontaneous
  Country: IT (occurrence: IT)
  Receive Date: 20121015
  Receipt Date: 20130228
  Transmission Date: 20140127
  Serious: Yes (Other)
  Sender: FDA-Public Use
  Company Number: IT-JNJFOC-20121006153

PATIENT
  Age: 32 Year
  Sex: Female

DRUGS (2)
  1. REMINYL [Suspect]
     Indication: DRUG ABUSE
     Route: 048
     Dates: start: 20121008, end: 20121008
  2. ZANTIPRIDE [Suspect]
     Indication: DRUG ABUSE
     Dosage: 30/MG/12.5MG
     Route: 048
     Dates: start: 20121008, end: 20121008

REACTIONS (4)
  - Self injurious behaviour [Unknown]
  - Hypotension [Unknown]
  - Intentional overdose [Unknown]
  - Substance abuse [Unknown]
